FAERS Safety Report 12551111 (Version 2)
Quarter: 2016Q3

REPORT INFORMATION
  Report Type: Spontaneous
  Country: FR (occurrence: FR)
  Receive Date: 20160713
  Receipt Date: 20160806
  Transmission Date: 20161109
  Serious: Yes (Other)
  Sender: FDA-Public Use
  Company Number: FR-AUROBINDO-AUR-APL-2016-04229

PATIENT
  Sex: Male
  Weight: 61.5 kg

DRUGS (13)
  1. ESOMEPRAZOLE [Suspect]
     Active Substance: ESOMEPRAZOLE
     Indication: PRODUCT USED FOR UNKNOWN INDICATION
     Dosage: 40 MG, ONCE A DAY
     Route: 065
  2. PENTAMIDINE [Concomitant]
     Active Substance: PENTAMIDINE
     Indication: PRODUCT USED FOR UNKNOWN INDICATION
     Dosage: 300 MG, UNK
     Route: 065
  3. ITRACONAZOLE. [Concomitant]
     Active Substance: ITRACONAZOLE
     Indication: PRODUCT USED FOR UNKNOWN INDICATION
     Dosage: 200 MG, TWO TIMES A DAY
     Route: 065
  4. DASATINIB [Interacting]
     Active Substance: DASATINIB
     Dosage: 50 MG, UNK
     Route: 065
  5. CEFUROXIME. [Concomitant]
     Active Substance: CEFUROXIME
     Indication: PRODUCT USED FOR UNKNOWN INDICATION
     Dosage: 250 MG, TWO TIMES A DAY
     Route: 065
  6. DASATINIB [Interacting]
     Active Substance: DASATINIB
     Dosage: 100 MG, ONCE A DAY
     Route: 048
  7. PREDNISOLONE. [Concomitant]
     Active Substance: PREDNISOLONE
     Indication: PRODUCT USED FOR UNKNOWN INDICATION
     Dosage: 15 MG, ONCE A DAY
     Route: 065
  8. DASATINIB [Interacting]
     Active Substance: DASATINIB
     Dosage: 70 MG, ONCE A DAY
     Route: 048
  9. DASATINIB [Interacting]
     Active Substance: DASATINIB
     Indication: PRODUCT USED FOR UNKNOWN INDICATION
     Route: 065
  10. VALACICLOVIR [Concomitant]
     Active Substance: VALACYCLOVIR HYDROCHLORIDE
     Indication: PRODUCT USED FOR UNKNOWN INDICATION
     Dosage: 500 MG, TWO TIMES A DAY
     Route: 065
  11. URSODEOXYCHOLIC ACID [Concomitant]
     Active Substance: URSODIOL
     Indication: PRODUCT USED FOR UNKNOWN INDICATION
     Dosage: 200 MG, TWO TIMES A DAY
     Route: 065
  12. ESOMEPRAZOLE [Interacting]
     Active Substance: ESOMEPRAZOLE
     Dosage: 20 MG, DAILY
     Route: 065
  13. DASATINIB [Interacting]
     Active Substance: DASATINIB
     Dosage: 60 MG, UNK
     Route: 065

REACTIONS (1)
  - Drug interaction [Recovered/Resolved]
